FAERS Safety Report 6703292-9 (Version None)
Quarter: 2010Q2

REPORT INFORMATION
  Report Type: 
  Country: None (occurrence: None)
  Receive Date: 20100430
  Receipt Date: 20100419
  Transmission Date: 20101027
  Serious: No
  Sender: FDA-Public Use
  Company Number: US-JNJFOC-20100405205

PATIENT
  Sex: Female
  Weight: 67.13 kg

DRUGS (2)
  1. DURAGESIC-100 [Suspect]
     Indication: BACK PAIN
     Route: 062
  2. DURAGESIC-100 [Suspect]
     Indication: BACK PAIN

REACTIONS (8)
  - BACK PAIN [None]
  - BOWEL MOVEMENT IRREGULARITY [None]
  - DEPRESSION [None]
  - DRUG DISPENSING ERROR [None]
  - DRUG EFFECT INCREASED [None]
  - MUSCLE SPASMS [None]
  - SOMNOLENCE [None]
  - WEIGHT DECREASED [None]
